FAERS Safety Report 4764736-5 (Version None)
Quarter: 2005Q3

REPORT INFORMATION
  Report Type: 
  Country: None (occurrence: None)
  Receive Date: 20050909
  Receipt Date: 20050607
  Transmission Date: 20060218
  Serious: Yes (Hospitalization, Other)
  Sender: FDA-Public Use
  Company Number: US-MERCK-0506USA01427

PATIENT
  Age: 53 Year
  Sex: Male
  Weight: 75 kg

DRUGS (11)
  1. VIOXX [Suspect]
     Indication: BACK PAIN
     Route: 048
     Dates: start: 20020521, end: 20040101
  2. VIOXX [Suspect]
     Indication: ARTHRITIS
     Route: 048
     Dates: start: 20020521, end: 20040101
  3. LORTAB [Concomitant]
     Route: 065
  4. ASPIRIN [Concomitant]
     Route: 065
     Dates: start: 20021216
  5. PLAVIX [Concomitant]
     Route: 065
     Dates: start: 20021216
  6. HEPARIN [Concomitant]
     Route: 065
     Dates: start: 20021216
  7. RETEVASE [Concomitant]
     Route: 065
     Dates: start: 20021216
  8. LOTREL [Concomitant]
     Route: 065
  9. PROTONIX [Concomitant]
     Indication: PEPTIC ULCER
     Route: 065
  10. LEVAQUIN [Concomitant]
     Indication: LUNG INFILTRATION
     Route: 065
  11. LEVAQUIN [Concomitant]
     Indication: PYREXIA
     Route: 065

REACTIONS (15)
  - AGITATION [None]
  - BLOOD CHOLESTEROL ABNORMAL [None]
  - BLOOD GLUCOSE INCREASED [None]
  - CORONARY ARTERY DISEASE [None]
  - DYSPEPSIA [None]
  - FLUID OVERLOAD [None]
  - HEART RATE IRREGULAR [None]
  - HERNIA [None]
  - HYPERTENSION [None]
  - MYOCARDIAL INFARCTION [None]
  - PLATELET COUNT DECREASED [None]
  - PLEURAL EFFUSION [None]
  - PYREXIA [None]
  - RENAL FAILURE [None]
  - RESPIRATORY FAILURE [None]
